FAERS Safety Report 10705368 (Version 6)
Quarter: 2015Q2

REPORT INFORMATION
  Report Type: Spontaneous
  Country: IT (occurrence: IT)
  Receive Date: 20150112
  Receipt Date: 20150413
  Transmission Date: 20150821
  Serious: Yes (Death)
  Sender: FDA-Public Use
  Company Number: IT-ROCHE-1519585

PATIENT
  Age: 49 Year
  Sex: Female

DRUGS (4)
  1. TYVERB [Suspect]
     Active Substance: LAPATINIB
     Indication: BREAST CANCER
     Dosage: 250 MG ?FILM-COATED TAB-ORAL USE-BLISTER
     Route: 048
     Dates: start: 20141119, end: 20141228
  2. CAPECITABINE. [Suspect]
     Active Substance: CAPECITABINE
     Indication: BREAST CANCER
     Route: 048
     Dates: start: 20141119, end: 20141228
  3. DEXAMETHASONE. [Concomitant]
     Active Substance: DEXAMETHASONE
     Route: 048
     Dates: start: 20141104, end: 20141228
  4. LAPATINIB [Concomitant]
     Active Substance: LAPATINIB
     Indication: BREAST CANCER
     Route: 065
     Dates: start: 20141119

REACTIONS (2)
  - Brain abscess [Fatal]
  - Pneumonia fungal [Fatal]

NARRATIVE: CASE EVENT DATE: 20141228
